FAERS Safety Report 6891736-1 (Version None)
Quarter: 2010Q3

REPORT INFORMATION
  Report Type: 
  Country: None (occurrence: None)
  Receive Date: 20100731
  Receipt Date: 20071003
  Transmission Date: 20110219
  Serious: No
  Sender: FDA-Public Use
  Company Number: US-PFIZER INC-2007082736

PATIENT
  Sex: Male
  Weight: 91.818 kg

DRUGS (4)
  1. CAVERJECT [Suspect]
     Indication: ERECTILE DYSFUNCTION
     Route: 011
     Dates: start: 20050101
  2. LOTREL [Concomitant]
  3. AVANDAMET [Concomitant]
  4. INSULIN DETEMIR [Concomitant]

REACTIONS (3)
  - DEVICE MALFUNCTION [None]
  - ERECTILE DYSFUNCTION [None]
  - INJECTION SITE PAIN [None]
